FAERS Safety Report 6018875-1 (Version None)
Quarter: 2009Q1

REPORT INFORMATION
  Report Type: 
  Country: None (occurrence: None)
  Receive Date: 20081221
  Receipt Date: 20081221
  Transmission Date: 20090719
  Serious: Yes (Disabling)
  Sender: FDA-Public Use
  Company Number: None

PATIENT
  Age: 55 Year
  Sex: Male
  Weight: 149.69 kg

DRUGS (1)
  1. REGULAR INSULIN [Suspect]
     Indication: DIABETES MELLITUS
     Dosage: 45 UNITS BID SQ
     Route: 058
     Dates: start: 20080728, end: 20080919

REACTIONS (6)
  - CARDIAC FAILURE [None]
  - FLUID RETENTION [None]
  - HYPERGLYCAEMIA [None]
  - OEDEMA [None]
  - WEIGHT DECREASED [None]
  - WHEEZING [None]
